FAERS Safety Report 13491063 (Version 1)
Quarter: 2017Q2

REPORT INFORMATION
  Report Type: Not Available
  Country: US (occurrence: US)
  Receive Date: 20170427
  Receipt Date: 20170427
  Transmission Date: 20170830
  Serious: No
  Sender: FDA-Public Use
  Company Number: US-ANIPHARMA-2017-US-004266

PATIENT
  Sex: Female

DRUGS (1)
  1. PROPRANOLOL EXTENDED RELEASE CAPSULES (NON-SPECIFIC) [Suspect]
     Active Substance: PROPRANOLOL HYDROCHLORIDE
     Route: 048

REACTIONS (2)
  - Aura [Unknown]
  - Withdrawal syndrome [Unknown]
